FAERS Safety Report 9270944 (Version 5)
Quarter: 2013Q2

REPORT INFORMATION
  Report Type: Spontaneous
  Country: DE (occurrence: DE)
  Receive Date: 20130506
  Receipt Date: 20130625
  Transmission Date: 20140414
  Serious: Yes (Hospitalization, Other)
  Sender: FDA-Public Use
  Company Number: DE-RANBAXY-2013RR-68470

PATIENT
  Age: 78 Year
  Sex: Female
  Weight: 82 kg

DRUGS (14)
  1. PANTOZOL [Suspect]
     Indication: DUODENAL ULCER
     Dosage: 40 MG, QD
     Route: 048
  2. PANTOZOL [Suspect]
     Indication: GASTRITIS EROSIVE
  3. RANITIDINE [Concomitant]
     Indication: DUODENAL ULCER
     Dosage: 150 MG, BID
     Route: 065
  4. RANITIDINE [Concomitant]
     Indication: GASTRITIS EROSIVE
  5. CLARITHROMYCIN/AMOXICILLIN [Concomitant]
     Indication: HELICOBACTER INFECTION
     Dosage: UNK
     Route: 065
  6. VERAPAMIL [Concomitant]
     Indication: PRODUCT USED FOR UNKNOWN INDICATION
     Dosage: 40 MG, BID
     Route: 065
  7. FUROSEMIDE [Concomitant]
     Indication: PRODUCT USED FOR UNKNOWN INDICATION
     Dosage: 40 MG, QD
     Route: 065
  8. ENALAPRIL [Concomitant]
     Indication: PRODUCT USED FOR UNKNOWN INDICATION
     Dosage: 5 MG, BID
     Route: 065
  9. SILDENAFIL [Concomitant]
     Indication: PRODUCT USED FOR UNKNOWN INDICATION
     Dosage: 20 MG, BID
     Route: 065
  10. DIGITOXIN [Concomitant]
     Indication: PRODUCT USED FOR UNKNOWN INDICATION
     Dosage: 0.07 MG, QD
     Route: 065
  11. METOCLOPRAMIDE [Concomitant]
     Indication: PRODUCT USED FOR UNKNOWN INDICATION
     Dosage: UNK, PRN
     Route: 065
  12. CITALOPRAM [Concomitant]
     Indication: PRODUCT USED FOR UNKNOWN INDICATION
     Dosage: 20 MG, QD
     Route: 065
  13. MIRTAZAPINE [Concomitant]
     Indication: PRODUCT USED FOR UNKNOWN INDICATION
     Dosage: 15 MG, QD
     Route: 065
  14. PHENPROCOUMON [Concomitant]
     Indication: PRODUCT USED FOR UNKNOWN INDICATION
     Dosage: UNK
     Route: 065

REACTIONS (5)
  - Nephritis allergic [Recovered/Resolved]
  - Renal failure acute [Recovered/Resolved]
  - Pleural effusion [Unknown]
  - Cardiomegaly [Unknown]
  - Pulmonary fibrosis [Unknown]
